FAERS Safety Report 14181293 (Version 2)
Quarter: 2018Q2

REPORT INFORMATION
  Report Type: Report from Study
  Country: IT (occurrence: IT)
  Receive Date: 20171112
  Receipt Date: 20180404
  Transmission Date: 20180711
  Serious: Yes (Other)
  Sender: FDA-Public Use
  Company Number: IT-TEVA-823992ACC

PATIENT
  Age: 17 Year
  Sex: Male

DRUGS (1)
  1. AMOXICILLIN TRIHYDRATE [Suspect]
     Active Substance: AMOXICILLIN
     Indication: TOOTH ABSCESS
     Dosage: 1 G TOTAL
     Route: 048
     Dates: start: 20170820, end: 20170820

REACTIONS (2)
  - Pruritus [Unknown]
  - Urticaria [Unknown]

NARRATIVE: CASE EVENT DATE: 20170821
